FAERS Safety Report 5775181-8 (Version None)
Quarter: 2008Q2

REPORT INFORMATION
  Report Type: 
  Country: None (occurrence: None)
  Receive Date: 20080617
  Receipt Date: 20080617
  Transmission Date: 20081010
  Serious: Yes (Other)
  Sender: FDA-Public Use
  Company Number: A0733385A

PATIENT
  Age: 42 Year
  Sex: Male

DRUGS (2)
  1. ALLI [Suspect]
     Indication: WEIGHT LOSS DIET
     Route: 048
     Dates: start: 20070701
  2. NO CONCURRENT MEDICATION [Concomitant]

REACTIONS (5)
  - BACK PAIN [None]
  - BLOOD BILIRUBIN INCREASED [None]
  - FAECAL VOLUME DECREASED [None]
  - HEPATOMEGALY [None]
  - INFREQUENT BOWEL MOVEMENTS [None]
